FAERS Safety Report 16073701 (Version 1)
Quarter: 2019Q1

REPORT INFORMATION
  Report Type: Spontaneous
  Country: IT (occurrence: IT)
  Receive Date: 20190314
  Receipt Date: 20190314
  Transmission Date: 20190418
  Serious: Yes (Other)
  Sender: FDA-Public Use
  Company Number: IT-ELI_LILLY_AND_COMPANY-IT201903003483

PATIENT
  Age: 68 Year
  Sex: Male

DRUGS (1)
  1. PEMETREXED. [Suspect]
     Active Substance: PEMETREXED
     Indication: PLEURAL MESOTHELIOMA
     Dosage: 800 MG, CYCLICAL
     Route: 042
     Dates: start: 20190108, end: 20190117

REACTIONS (2)
  - Bone marrow toxicity [Recovering/Resolving]
  - Gastrointestinal toxicity [Recovering/Resolving]

NARRATIVE: CASE EVENT DATE: 20190117
